FAERS Safety Report 5118107-2 (Version None)
Quarter: 2006Q3

REPORT INFORMATION
  Report Type: 
  Country: None (occurrence: None)
  Receive Date: 20060926
  Receipt Date: 20060904
  Transmission Date: 20061208
  Serious: Yes (Hospitalization)
  Sender: FDA-Public Use
  Company Number: BR200609002256

PATIENT
  Age: 87 Year
  Sex: Female
  Weight: 88 kg

DRUGS (5)
  1. FORTEO [Suspect]
     Indication: OSTEOPOROSIS
     Dosage: 20 UG, DAILY (1/D), SUBCUTANEOUS
     Route: 058
     Dates: start: 20060721
  2. FORTEP PEN (FORTEO PEN) PEN, DISPOSABLE [Concomitant]
  3. INSULIN (INSULIN) [Concomitant]
  4. GLICLAZIDE (GLICLAZIDE) [Concomitant]
  5. PHENYTOIN [Concomitant]

REACTIONS (3)
  - FALL [None]
  - FEMUR FRACTURE [None]
  - SYNCOPE [None]
